FAERS Safety Report 16613597 (Version 1)
Quarter: 2019Q3

REPORT INFORMATION
  Report Type: Report from Study
  Country: US (occurrence: US)
  Receive Date: 20190723
  Receipt Date: 20190723
  Transmission Date: 20191004
  Serious: Yes (Other)
  Sender: FDA-Public Use
  Company Number: US-ROCHE-2352546

PATIENT
  Age: 57 Year
  Sex: Female
  Weight: 61.29 kg

DRUGS (7)
  1. VARFARINA [Concomitant]
     Active Substance: WARFARIN SODIUM
     Route: 065
  2. DDAVP [Concomitant]
     Active Substance: DESMOPRESSIN ACETATE
  3. OCREVUS [Suspect]
     Active Substance: OCRELIZUMAB
     Indication: MULTIPLE SCLEROSIS
     Route: 065
     Dates: start: 201707
  4. SYNTHROID [Concomitant]
     Active Substance: LEVOTHYROXINE SODIUM
     Route: 065
  5. ADDERALL [Concomitant]
     Active Substance: AMPHETAMINE ASPARTATE\AMPHETAMINE SULFATE\DEXTROAMPHETAMINE SACCHARATE\DEXTROAMPHETAMINE SULFATE
     Route: 048
  6. AMPYRA [Concomitant]
     Active Substance: DALFAMPRIDINE
     Route: 065
  7. MYRBETRIQ [Concomitant]
     Active Substance: MIRABEGRON
     Route: 065

REACTIONS (5)
  - Micturition urgency [Recovered/Resolved]
  - Urinary incontinence [Recovered/Resolved]
  - Nephrolithiasis [Not Recovered/Not Resolved]
  - Urinary tract infection [Not Recovered/Not Resolved]
  - Pseudomonas test positive [Unknown]

NARRATIVE: CASE EVENT DATE: 20190515
